FAERS Safety Report 4263664-1 (Version None)
Quarter: 2004Q1

REPORT INFORMATION
  Report Type: 
  Country: None (occurrence: None)
  Receive Date: 20040102
  Receipt Date: 20031223
  Transmission Date: 20041129
  Serious: Yes (Hospitalization)
  Sender: FDA-Public Use
  Company Number: 03P-056-0245700-00

PATIENT
  Age: 58 Year
  Sex: Male

DRUGS (3)
  1. DEPAKENE [Suspect]
     Indication: EPILEPSY
     Dosage: 3000 MG, 1 IN 1 D, ORAL; 1500 MG, 1 IN 1 D, ORAL; 1000 MG, 1 IN 1 D, ORAL
     Route: 048
     Dates: start: 19660101, end: 20030415
  2. DEPAKENE [Suspect]
     Indication: EPILEPSY
     Dosage: 3000 MG, 1 IN 1 D, ORAL; 1500 MG, 1 IN 1 D, ORAL; 1000 MG, 1 IN 1 D, ORAL
     Route: 048
     Dates: start: 20030415, end: 20030613
  3. DEPAKENE [Suspect]
     Indication: EPILEPSY
     Dosage: 3000 MG, 1 IN 1 D, ORAL; 1500 MG, 1 IN 1 D, ORAL; 1000 MG, 1 IN 1 D, ORAL
     Route: 048
     Dates: start: 20030613

REACTIONS (2)
  - DYSKINESIA [None]
  - PARKINSON'S DISEASE [None]
